FAERS Safety Report 11639455 (Version 1)
Quarter: 2015Q4

REPORT INFORMATION
  Report Type: Report from Study
  Country: US (occurrence: US)
  Receive Date: 20151019
  Receipt Date: 20151019
  Transmission Date: 20160304
  Serious: No
  Sender: FDA-Public Use
  Company Number: PHEH2014US013653

PATIENT
  Age: 55 Year
  Sex: Male
  Weight: 68.8 kg

DRUGS (12)
  1. ZOLOFT [Concomitant]
     Active Substance: SERTRALINE HYDROCHLORIDE
     Dosage: UNK UKN, UNK
  2. HYDROCODONE [Concomitant]
     Active Substance: HYDROCODONE
     Dosage: UNK UKN, UNK
  3. MULTI VITAMIN [Concomitant]
     Active Substance: VITAMINS
     Dosage: UNK UKN, UNK
  4. VIMOVO [Concomitant]
     Active Substance: ESOMEPRAZOLE MAGNESIUM\NAPROXEN
     Dosage: UNK UKN, UNK
  5. CYMBALTA [Concomitant]
     Active Substance: DULOXETINE HYDROCHLORIDE
     Dosage: UNK UKN, UNK
  6. REVLIMID [Suspect]
     Active Substance: LENALIDOMIDE
     Indication: PLASMA CELL MYELOMA
     Dosage: 10 MG, DAILY
     Route: 048
     Dates: start: 20121015
  7. ZOMETA [Suspect]
     Active Substance: ZOLEDRONIC ACID
     Indication: PLASMA CELL MYELOMA
     Dosage: UNK UKN, UNK
     Dates: start: 20121218
  8. SINGULAIR [Concomitant]
     Active Substance: MONTELUKAST SODIUM
     Dosage: UNK UKN, UNK
  9. TRAZODONE [Concomitant]
     Active Substance: TRAZODONE HYDROCHLORIDE
     Dosage: UNK UKN, UNK
  10. BABY ASPIRIN [Concomitant]
     Active Substance: ASPIRIN
     Dosage: UNK UKN, UNK
  11. METHADONE [Concomitant]
     Active Substance: METHADONE HYDROCHLORIDE
     Dosage: UNK UKN, UNK
  12. OLANZAPINE. [Concomitant]
     Active Substance: OLANZAPINE
     Dosage: UNK UKN, UNK

REACTIONS (1)
  - Rash [Recovered/Resolved]

NARRATIVE: CASE EVENT DATE: 20140721
